FAERS Safety Report 7319735-6 (Version None)
Quarter: 2011Q1

REPORT INFORMATION
  Report Type: 
  Country: None (occurrence: None)
  Receive Date: 20110228
  Receipt Date: 20100927
  Transmission Date: 20110831
  Serious: No
  Sender: FDA-Public Use
  Company Number: A0878395A

PATIENT
  Age: 30 Year
  Sex: Female

DRUGS (7)
  1. WELLBUTRIN [Suspect]
  2. LAMICTAL [Suspect]
     Indication: BIPOLAR DISORDER
     Dosage: 200MG PER DAY
     Route: 048
     Dates: start: 20091201, end: 20100826
  3. KLONOPIN [Concomitant]
  4. CYMBALTA [Concomitant]
  5. TRAZODONE [Concomitant]
  6. GEODON [Concomitant]
  7. AMBIEN [Concomitant]

REACTIONS (1)
  - RASH [None]
